FAERS Safety Report 23513917 (Version 1)
Quarter: 2024Q1

REPORT INFORMATION
  Report Type: Spontaneous
  Country: DE (occurrence: DE)
  Receive Date: 20240212
  Receipt Date: 20240212
  Transmission Date: 20240410
  Serious: Yes (Other)
  Sender: FDA-Public Use
  Company Number: DE-ACRAF SpA-2024-033388

PATIENT

DRUGS (2)
  1. XCOPRI [Suspect]
     Active Substance: CENOBAMATE
     Indication: Epilepsy
     Dosage: UNK
     Route: 048
  2. PHENOBARBITAL\PHENYTOIN [Suspect]
     Active Substance: PHENOBARBITAL\PHENYTOIN
     Indication: Epilepsy
     Dosage: 2X100 (100 MG,2 IN 1 D)
     Route: 048

REACTIONS (4)
  - Epilepsy [Recovered/Resolved]
  - Emotional disorder [Recovered/Resolved]
  - Off label use [Recovered/Resolved]
  - Labelled drug-drug interaction issue [Recovered/Resolved]
